FAERS Safety Report 18609389 (Version 1)
Quarter: 2020Q4

REPORT INFORMATION
  Report Type: Spontaneous
  Country: SE (occurrence: SE)
  Receive Date: 20201214
  Receipt Date: 20201214
  Transmission Date: 20210114
  Serious: Yes (Death)
  Sender: FDA-Public Use
  Company Number: SE-ROCHE-2728097

PATIENT
  Age: 65 Year
  Sex: Male

DRUGS (18)
  1. TROMBYL [Concomitant]
     Active Substance: ASPIRIN
     Dates: start: 20170908
  2. MINIDERM (SWEDEN) [Concomitant]
     Dates: start: 20170907
  3. HYDROCHLOROTHIAZIDE. [Concomitant]
     Active Substance: HYDROCHLOROTHIAZIDE
     Dates: start: 20170908
  4. BETNOVAT [Concomitant]
     Active Substance: BETAMETHASONE
     Dates: start: 20170929
  5. JANUVIA [Concomitant]
     Active Substance: SITAGLIPTIN PHOSPHATE
     Dates: start: 20170908
  6. INOLAXOL [Concomitant]
     Active Substance: HERBALS\KARAYA GUM
     Dates: start: 20200924
  7. BUFOMIX EASYHALER [Concomitant]
     Active Substance: BUDESONIDE\FORMOTEROL FUMARATE
     Dosage: 2 INHALATIONER 2 GANGER DAGLIGEN
     Dates: start: 20190206
  8. RAMIPRIL. [Concomitant]
     Active Substance: RAMIPRIL
     Dates: start: 20170908
  9. LORATADINE. [Concomitant]
     Active Substance: LORATADINE
     Dosage: 1 TABLETT VID BEHOV
     Dates: start: 20170907
  10. ATORVASTATIN [Concomitant]
     Active Substance: ATORVASTATIN
     Dates: start: 20180721
  11. CAPECITABINE. [Suspect]
     Active Substance: CAPECITABINE
     Indication: PRODUCT USED FOR UNKNOWN INDICATION
     Route: 065
     Dates: start: 20200908, end: 20201011
  12. METFORMIN [Concomitant]
     Active Substance: METFORMIN HYDROCHLORIDE
     Dates: start: 20170907
  13. OXALIPLATIN. [Suspect]
     Active Substance: OXALIPLATIN
     Indication: PRODUCT USED FOR UNKNOWN INDICATION
     Route: 065
     Dates: start: 20200908
  14. MINDIAB [Concomitant]
     Active Substance: GLIPIZIDE
     Dates: start: 20170908
  15. BRICANYL [Concomitant]
     Active Substance: TERBUTALINE SULFATE
     Dosage: 1 INHALATION VID BEHOV
     Dates: start: 20190206
  16. BETNOVAT [Concomitant]
     Active Substance: BETAMETHASONE
     Dosage: 1 MG/ML
     Dates: start: 20171129
  17. ALVEDON [Concomitant]
     Active Substance: ACETAMINOPHEN
     Dosage: 2 TABLETTER VID BEHOV 3GANGER DAGLIGEN
     Dates: start: 20200812
  18. OMEPRAZOLE. [Concomitant]
     Active Substance: OMEPRAZOLE
     Dates: start: 20170908

REACTIONS (3)
  - Gastrointestinal mucosal necrosis [Fatal]
  - Small intestinal haemorrhage [Fatal]
  - Gastrointestinal oedema [Fatal]

NARRATIVE: CASE EVENT DATE: 202010
